FAERS Safety Report 18787263 (Version 2)
Quarter: 2021Q2

REPORT INFORMATION
  Report Type: Spontaneous
  Country: US (occurrence: US)
  Receive Date: 20210126
  Receipt Date: 20210505
  Transmission Date: 20210717
  Serious: No
  Sender: FDA-Public Use
  Company Number: US-TEVA-2020-US-1865108

PATIENT
  Sex: Female

DRUGS (6)
  1. SEROQUEL [Concomitant]
     Active Substance: QUETIAPINE FUMARATE
  2. VITAMIN B12 [Concomitant]
     Active Substance: CYANOCOBALAMIN
  3. AUSTEDO [Suspect]
     Active Substance: DEUTETRABENAZINE
     Dosage: 36 MILLIGRAM DAILY; 2 TABLETS IN THE MORNING AND 1 TABLET IN THE EVENING (24MG IN AM/12MG IN PM)
     Route: 048
     Dates: start: 202012
  4. AUSTEDO [Suspect]
     Active Substance: DEUTETRABENAZINE
     Indication: TARDIVE DYSKINESIA
     Dosage: 24 MILLIGRAM DAILY; 12MG IN AM/12MG IN PM
     Route: 048
     Dates: start: 202010
  5. LITHIUM. [Concomitant]
     Active Substance: LITHIUM
  6. BIOTIN [Concomitant]
     Active Substance: BIOTIN

REACTIONS (4)
  - Fatigue [Unknown]
  - Depression [Unknown]
  - Insomnia [Unknown]
  - Balance disorder [Unknown]
